FAERS Safety Report 5221058-6 (Version None)
Quarter: 2007Q1

REPORT INFORMATION
  Report Type: 
  Country: None (occurrence: None)
  Receive Date: 20070126
  Receipt Date: 20070122
  Transmission Date: 20070707
  Serious: Yes (Other)
  Sender: FDA-Public Use
  Company Number: 2007UW01333

PATIENT
  Age: 66 Year
  Sex: Female

DRUGS (2)
  1. ARIMIDEX [Suspect]
     Indication: BREAST CANCER RECURRENT
     Route: 048
     Dates: start: 20060701
  2. CALTRATE D [Suspect]

REACTIONS (2)
  - LIVER TENDERNESS [None]
  - NAUSEA [None]
